FAERS Safety Report 25865004 (Version 1)
Quarter: 2025Q3

REPORT INFORMATION
  Report Type: Spontaneous
  Country: EU (occurrence: EU)
  Receive Date: 20250930
  Receipt Date: 20250930
  Transmission Date: 20251021
  Serious: Yes (Hospitalization, Other)
  Sender: BRISTOL-MYERS SQUIBB COMPANY
  Company Number: EU-SUN PHARMACEUTICAL INDUSTRIES LTD-2025R1-528877

PATIENT
  Age: 63 Year
  Sex: Female

DRUGS (5)
  1. DASATINIB [Suspect]
     Active Substance: DASATINIB
     Indication: Acute lymphocytic leukaemia
  2. DASATINIB [Suspect]
     Active Substance: DASATINIB
  3. BLINATUMOMAB [Suspect]
     Active Substance: BLINATUMOMAB
     Indication: Acute lymphocytic leukaemia
  4. BLINATUMOMAB [Suspect]
     Active Substance: BLINATUMOMAB
  5. BLINATUMOMAB [Suspect]
     Active Substance: BLINATUMOMAB

REACTIONS (2)
  - Large intestine perforation [Recovered/Resolved]
  - Colitis [Recovered/Resolved]
